FAERS Safety Report 6458968-8 (Version None)
Quarter: 2009Q4

REPORT INFORMATION
  Report Type: 
  Country: None (occurrence: None)
  Receive Date: 20091127
  Receipt Date: 20091116
  Transmission Date: 20100525
  Serious: Yes (Hospitalization)
  Sender: FDA-Public Use
  Company Number: NL-ELI_LILLY_AND_COMPANY-NL200909007077

PATIENT
  Sex: Female

DRUGS (6)
  1. CYMBALTA [Suspect]
     Indication: DEPRESSION
     Dosage: UNK, UNKNOWN
     Dates: start: 20070601, end: 20090601
  2. CYMBALTA [Suspect]
     Dosage: UNK, UNKNOWN
     Dates: start: 20090701, end: 20090801
  3. CYMBALTA [Suspect]
     Dosage: UNK, UNKNOWN
     Dates: start: 20090916, end: 20090922
  4. HYDROCHLOROTHIAZIDE [Concomitant]
     Dosage: 12.5 MG, 2/D
  5. STILNOCT [Concomitant]
     Dosage: 10 MG, AS NEEDED
  6. OXAZEPAM [Concomitant]
     Dosage: 10 MG, AS NEEDED

REACTIONS (1)
  - OROMANDIBULAR DYSTONIA [None]
